FAERS Safety Report 10560313 (Version 1)
Quarter: 2014Q4

REPORT INFORMATION
  Report Type: Spontaneous
  Country: US (occurrence: US)
  Receive Date: 20141103
  Receipt Date: 20141103
  Transmission Date: 20150529
  Serious: No
  Sender: FDA-Public Use
  Company Number: US-BAUSCH-BL-2013-005048

PATIENT
  Age: 48 Year
  Sex: Female

DRUGS (10)
  1. BEPREVE (BEPOTASTINE BESILATE OPHTHALMIC SOLUTION 1.5%) [Suspect]
     Active Substance: BEPOTASTINE\BEPOTASTINE BESILATE
     Dosage: 1 DROP; TWICE DAILY; LEFT EYE
     Route: 047
     Dates: start: 20130905, end: 20130908
  2. LOSARTAN [Concomitant]
     Active Substance: LOSARTAN
     Indication: HYPERTENSION
  3. BEPREVE (BEPOTASTINE BESILATE OPHTHALMIC SOLUTION 1.5%) [Suspect]
     Active Substance: BEPOTASTINE\BEPOTASTINE BESILATE
     Indication: EYE ALLERGY
     Dosage: 1 DROP; TWICE DAILY; RIGHT EYE
     Route: 047
     Dates: start: 2013, end: 2013
  4. DORZOLAMIDE [Concomitant]
     Active Substance: DORZOLAMIDE
     Indication: GLAUCOMA
  5. NASONEX [Concomitant]
     Active Substance: MOMETASONE FUROATE
     Indication: SEASONAL ALLERGY
  6. XYZAL [Concomitant]
     Active Substance: LEVOCETIRIZINE DIHYDROCHLORIDE
     Indication: SEASONAL ALLERGY
  7. BEPREVE (BEPOTASTINE BESILATE OPHTHALMIC SOLUTION 1.5%) [Suspect]
     Active Substance: BEPOTASTINE\BEPOTASTINE BESILATE
     Dosage: 1 DROP; TWICE DAILY; RIGHT EYE
     Route: 047
     Dates: start: 20130823, end: 20130825
  8. ARTIFICIAL TEARS [Concomitant]
     Active Substance: GLYCERIN\HYPROMELLOSES\POLYETHYLENE GLYCOL 400
     Indication: DRY EYE
  9. BEPREVE (BEPOTASTINE BESILATE OPHTHALMIC SOLUTION 1.5%) [Suspect]
     Active Substance: BEPOTASTINE\BEPOTASTINE BESILATE
     Dosage: 1 DROP; TWICE DAILY; RIGHT EYE
     Route: 047
     Dates: start: 20130905, end: 20130908
  10. BEPREVE (BEPOTASTINE BESILATE OPHTHALMIC SOLUTION 1.5%) [Suspect]
     Active Substance: BEPOTASTINE\BEPOTASTINE BESILATE
     Dosage: 1 DROP; TWICE DAILY; LEFT EYE
     Route: 047
     Dates: start: 20130823, end: 20130825

REACTIONS (6)
  - Ocular hyperaemia [Recovered/Resolved]
  - Rash [Recovered/Resolved]
  - Headache [Recovered/Resolved]
  - Eye pruritus [Recovered/Resolved]
  - Foreign body sensation in eyes [Recovered/Resolved]
  - Eye swelling [Recovered/Resolved]

NARRATIVE: CASE EVENT DATE: 20130823
